FAERS Safety Report 4295326-9 (Version None)
Quarter: 2004Q1

REPORT INFORMATION
  Report Type: 
  Country: None (occurrence: None)
  Receive Date: 20040216
  Receipt Date: 20030610
  Transmission Date: 20041129
  Serious: No
  Sender: FDA-Public Use
  Company Number: US-GLAXOSMITHKLINE-A0411788A

PATIENT
  Age: 18 Year
  Sex: Female

DRUGS (1)
  1. LAMICTAL [Suspect]
     Indication: PANIC DISORDER
     Dosage: 5MG TWICE PER DAY
     Route: 048
     Dates: start: 20030422, end: 20030505

REACTIONS (1)
  - RASH PRURITIC [None]
